FAERS Safety Report 23857748 (Version 1)
Quarter: 2024Q2

REPORT INFORMATION
  Report Type: Report from Study
  Country: US (occurrence: None)
  Receive Date: 20240515
  Receipt Date: 20240515
  Transmission Date: 20240716
  Serious: Yes (Other)
  Sender: FDA-Public Use
  Company Number: 2024A110649

PATIENT
  Sex: Female
  Weight: 58 kg

DRUGS (1)
  1. TRUQAP [Suspect]
     Active Substance: CAPIVASERTIB
     Indication: Crystalluria
     Route: 048
     Dates: start: 20240111

REACTIONS (1)
  - Disease progression [Unknown]
